FAERS Safety Report 8797437 (Version 2)
Quarter: 2015Q1

REPORT INFORMATION
  Report Type: Report from Study
  Country: US (occurrence: US)
  Receive Date: 20120919
  Receipt Date: 20150304
  Transmission Date: 20150721
  Serious: Yes (Death)
  Sender: FDA-Public Use
  Company Number: US-ROCHE-1103379

PATIENT
  Sex: Female

DRUGS (20)
  1. ELAVIL (UNITED STATES) [Concomitant]
  2. COMPAZINE [Concomitant]
     Active Substance: PROCHLORPERAZINE MALEATE
  3. AVASTIN [Suspect]
     Active Substance: BEVACIZUMAB
     Indication: MALIGNANT NEOPLASM OF UTERINE ADNEXA
     Route: 042
     Dates: start: 20081121
  4. TAXOL [Concomitant]
     Active Substance: PACLITAXEL
     Route: 042
  5. HEXALEN [Concomitant]
     Active Substance: ALTRETAMINE
  6. FEXOFENADINE [Concomitant]
     Active Substance: FEXOFENADINE\FEXOFENADINE HYDROCHLORIDE
  7. GLUTAMINE [Concomitant]
     Active Substance: GLUTAMINE
  8. DECADRON [Concomitant]
     Active Substance: DEXAMETHASONE
     Route: 042
  9. TAXOL [Concomitant]
     Active Substance: PACLITAXEL
     Route: 042
  10. PEPCID [Concomitant]
     Active Substance: FAMOTIDINE
     Route: 042
  11. VITAMIN B6 [Concomitant]
     Active Substance: PYRIDOXINE HYDROCHLORIDE
     Dosage: DAILY
     Route: 065
  12. NORTRIPTYLINE [Concomitant]
     Active Substance: NORTRIPTYLINE
     Route: 065
  13. BENADRYL [Concomitant]
     Active Substance: DIPHENHYDRAMINE HYDROCHLORIDE
     Route: 042
  14. NEURONTIN [Concomitant]
     Active Substance: GABAPENTIN
  15. ATIVAN [Concomitant]
     Active Substance: LORAZEPAM
     Route: 048
  16. L-CARNITINE [Concomitant]
     Active Substance: CARNITINE
     Route: 065
  17. AVASTIN [Suspect]
     Active Substance: BEVACIZUMAB
     Indication: OVARIAN CANCER
  18. TAXOL [Concomitant]
     Active Substance: PACLITAXEL
     Route: 042
  19. VITAMIN B12 [Concomitant]
     Active Substance: CYANOCOBALAMIN
  20. ALPHA LIPOIC ACID [Concomitant]
     Active Substance: .ALPHA.-LIPOIC ACID

REACTIONS (8)
  - Neuropathy peripheral [Unknown]
  - Muscular weakness [Unknown]
  - Hypoaesthesia [Unknown]
  - Death [Fatal]
  - Headache [Unknown]
  - Hypertension [Unknown]
  - Paraesthesia [Unknown]
  - Upper respiratory tract infection [Unknown]
